FAERS Safety Report 8553376-8 (Version None)
Quarter: 2012Q2

REPORT INFORMATION
  Report Type: 
  Country: None (occurrence: None)
  Receive Date: 20120417
  Receipt Date: 20110720
  Transmission Date: 20120825
  Serious: Yes (Other)
  Sender: FDA-Public Use
  Company Number: 1-440

PATIENT
  Age: 40 Year
  Sex: Female
  Weight: 58 kg

DRUGS (3)
  1. PLAQUENIL [Concomitant]
  2. ALEVE [Suspect]
     Indication: ARTHRITIS
     Dosage: 2DF / ONCE / ORAL
     Route: 048
     Dates: end: 20110707
  3. VITAMINS NOS [Concomitant]

REACTIONS (1)
  - DRUG HYPERSENSITIVITY [None]
